FAERS Safety Report 22084328 (Version 2)
Quarter: 2023Q1

REPORT INFORMATION
  Report Type: Other
  Country: US (occurrence: None)
  Receive Date: 20230310
  Receipt Date: 20230323
  Transmission Date: 20230418
  Serious: No
  Sender: FDA-Public Use
  Company Number: US-ROCHE-3299311

PATIENT
  Age: 33 Year
  Sex: Female

DRUGS (1)
  1. OCREVUS [Suspect]
     Active Substance: OCRELIZUMAB
     Indication: Relapsing multiple sclerosis
     Dosage: DATE OF TREATMENT, 16/MAR/2020, 07/JAN/2019, 15/JUL/2021, 16/APR/2021, 31/AUG/2020
     Route: 065

REACTIONS (2)
  - Maternal exposure before pregnancy [Unknown]
  - COVID-19 [Recovered/Resolved]
